FAERS Safety Report 10553637 (Version 1)
Quarter: 2014Q4

REPORT INFORMATION
  Report Type: Spontaneous
  Country: JP (occurrence: None)
  Receive Date: 20141028
  Receipt Date: 20141028
  Transmission Date: 20150529
  Serious: No
  Sender: FDA-Public Use
  Company Number: A201411066

PATIENT
  Age: 43 Year
  Sex: Female

DRUGS (1)
  1. PAROXETINE HYDROCHLORIDE (PAROXETINE HYDROCHLORIDE) [Suspect]
     Active Substance: PAROXETINE HYDROCHLORIDE
     Indication: DEPRESSION
     Route: 048

REACTIONS (1)
  - Pyrexia [None]
